FAERS Safety Report 5904450-3 (Version None)
Quarter: 2008Q3

REPORT INFORMATION
  Report Type: 
  Country: None (occurrence: None)
  Receive Date: 20080930
  Receipt Date: 20080930
  Transmission Date: 20090109
  Serious: Yes (Life-Threatening)
  Sender: FDA-Public Use
  Company Number: None

PATIENT
  Sex: Female
  Weight: 120.2032 kg

DRUGS (12)
  1. DETROL [Suspect]
     Indication: HYPERTONIC BLADDER
     Dosage: 1 CAPSULE DAILY PO
     Route: 048
     Dates: start: 20080607, end: 20080907
  2. ARMOR THYROID [Concomitant]
  3. CARDIZAM [Concomitant]
  4. COUMADIN [Concomitant]
  5. SIMVASTATIN [Concomitant]
  6. ZESTRIL [Concomitant]
  7. LISINOPRIL [Concomitant]
  8. BETAPACE [Concomitant]
  9. AMBIEN [Concomitant]
  10. XANAX [Concomitant]
  11. VITAMINS - ZINC [Concomitant]
  12. FISH OIL [Concomitant]

REACTIONS (11)
  - ATRIAL FIBRILLATION [None]
  - BLOOD PRESSURE INCREASED [None]
  - DRUG LEVEL FLUCTUATING [None]
  - DRY MOUTH [None]
  - FALL [None]
  - FATIGUE [None]
  - INTERNATIONAL NORMALISED RATIO FLUCTUATION [None]
  - LACRIMATION INCREASED [None]
  - LOSS OF CONSCIOUSNESS [None]
  - PHARMACEUTICAL PRODUCT COMPLAINT [None]
  - URINARY INCONTINENCE [None]
